FAERS Safety Report 20537758 (Version 1)
Quarter: 2022Q1

REPORT INFORMATION
  Report Type: Report from Study
  Country: FR (occurrence: FR)
  Receive Date: 20220302
  Receipt Date: 20220302
  Transmission Date: 20220423
  Serious: Yes (Hospitalization)
  Sender: FDA-Public Use
  Company Number: FR-GLAXOSMITHKLINE-FR2022EME035448

PATIENT
  Age: 61 Year
  Sex: Male

DRUGS (1)
  1. BELANTAMAB MAFODOTIN [Suspect]
     Active Substance: BELANTAMAB MAFODOTIN
     Indication: Plasma cell myeloma
     Dosage: UNK
     Dates: start: 20210105

REACTIONS (4)
  - Hypercalcaemia [Recovered/Resolved]
  - Hypercalcaemia of malignancy [Recovered/Resolved]
  - General physical health deterioration [Recovering/Resolving]
  - Keratopathy [Recovered/Resolved]
